FAERS Safety Report 13477861 (Version 3)
Quarter: 2018Q1

REPORT INFORMATION
  Report Type: Report from Study
  Country: US (occurrence: US)
  Receive Date: 20170424
  Receipt Date: 20180115
  Transmission Date: 20180508
  Serious: No
  Sender: FDA-Public Use
  Company Number: US-AMGEN-USASL2017015426

PATIENT
  Age: 85 Year
  Sex: Female
  Weight: 162 kg

DRUGS (1)
  1. REPATHA [Suspect]
     Active Substance: EVOLOCUMAB
     Indication: HYPERLIPIDAEMIA
     Dosage: 140 MG, BID
     Route: 065
     Dates: start: 201606

REACTIONS (3)
  - Injection site rash [Unknown]
  - Fear [Unknown]
  - Off label use [Unknown]
